FAERS Safety Report 7934982-8 (Version None)
Quarter: 2011Q4

REPORT INFORMATION
  Report Type: 
  Country: None (occurrence: None)
  Receive Date: 20111122
  Receipt Date: 20111115
  Transmission Date: 20120403
  Serious: Yes (Hospitalization)
  Sender: FDA-Public Use
  Company Number: HU-JNJFOC-20110202164

PATIENT
  Sex: Female
  Weight: 77 kg

DRUGS (15)
  1. PLACEBO [Suspect]
     Indication: RHEUMATOID ARTHRITIS
     Route: 058
     Dates: start: 20061004, end: 20070905
  2. METHOTREXATE [Suspect]
     Indication: RHEUMATOID ARTHRITIS
     Route: 048
     Dates: start: 20061004
  3. METHYLPREDNISOLONE [Concomitant]
     Route: 048
     Dates: start: 20051201
  4. METHOTREXATE [Concomitant]
     Route: 048
     Dates: start: 20080618
  5. GOLIMUMAB [Suspect]
     Route: 058
  6. GOLIMUMAB [Suspect]
     Indication: RHEUMATOID ARTHRITIS
     Route: 058
     Dates: start: 20071010
  7. CARVEDILOL [Concomitant]
     Route: 048
     Dates: start: 20100101
  8. METHOTREXATE [Concomitant]
     Route: 048
  9. BISOPROLOL FUMARATE [Concomitant]
     Route: 048
     Dates: start: 20051201
  10. RABEPRAZOLE SODIUM [Concomitant]
     Route: 048
     Dates: start: 20051201
  11. DIVIGEL [Concomitant]
     Route: 062
     Dates: start: 20100101
  12. VITAMIN D [Concomitant]
     Route: 048
     Dates: start: 20100101
  13. INDOMETHACIN [Concomitant]
     Route: 054
     Dates: start: 20051201
  14. POTASSIUM CHLORIDE [Concomitant]
     Route: 048
     Dates: start: 20051201
  15. FOLIC ACID [Concomitant]
     Route: 048
     Dates: start: 20061004

REACTIONS (1)
  - THYROID NEOPLASM [None]
